FAERS Safety Report 17236367 (Version 1)
Quarter: 2020Q1

REPORT INFORMATION
  Report Type: Spontaneous
  Country: DE (occurrence: DE)
  Receive Date: 20200106
  Receipt Date: 20200106
  Transmission Date: 20200409
  Serious: Yes (Hospitalization, Other)
  Sender: FDA-Public Use
  Company Number: DE-EMD SERONO-E2B_90073715

PATIENT
  Age: 30 Year
  Sex: Female
  Weight: 57 kg

DRUGS (5)
  1. BEMFOLA [Suspect]
     Active Substance: FOLLITROPIN
     Dates: start: 20190906, end: 20190909
  2. OVITRELLE [Suspect]
     Active Substance: CHORIOGONADOTROPIN ALFA
     Indication: ASSISTED REPRODUCTIVE TECHNOLOGY
     Route: 058
     Dates: start: 20190910
  3. BEMFOLA [Suspect]
     Active Substance: FOLLITROPIN
     Indication: ASSISTED REPRODUCTIVE TECHNOLOGY
     Dosage: PRE-FILLED PEN
     Dates: start: 20190831, end: 20190902
  4. BEMFOLA [Suspect]
     Active Substance: FOLLITROPIN
     Dates: start: 20190903, end: 20190905
  5. ORGALUTRAN [Suspect]
     Active Substance: GANIRELIX ACETATE
     Indication: ASSISTED REPRODUCTIVE TECHNOLOGY
     Route: 058
     Dates: start: 20190904, end: 20190909

REACTIONS (3)
  - Waist circumference increased [Not Recovered/Not Resolved]
  - Ovarian hyperstimulation syndrome [Recovered/Resolved]
  - Discomfort [Not Recovered/Not Resolved]

NARRATIVE: CASE EVENT DATE: 20190913
